FAERS Safety Report 21409678 (Version 6)
Quarter: 2022Q4

REPORT INFORMATION
  Report Type: Spontaneous
  Country: CA (occurrence: CA)
  Receive Date: 20221004
  Receipt Date: 20221231
  Transmission Date: 20230113
  Serious: Yes (Other)
  Sender: FDA-Public Use
  Company Number: CA-CELLTRION INC.-2022CA007228

PATIENT

DRUGS (7)
  1. INFLECTRA [Suspect]
     Active Substance: INFLIXIMAB-DYYB
     Indication: Crohn^s disease
     Dosage: 1 DF, UNKNOWN DOSE AT Q 0 ,2, 6 THEN EVERY 8 WEEKS
     Route: 042
     Dates: start: 20220608
  2. INFLECTRA [Suspect]
     Active Substance: INFLIXIMAB-DYYB
     Dosage: 5 MG/KG, WEEKS 0 ,2, 6 THEN Q8WEEKS-ROUND UP DOSE TO NEXT VIAL
     Route: 042
     Dates: start: 20220608, end: 20220920
  3. INFLECTRA [Suspect]
     Active Substance: INFLIXIMAB-DYYB
     Dosage: 1 DF, UNKNOWN DOSE AT Q 0 ,2, 6 THEN EVERY 8 WEEKS
     Route: 042
     Dates: start: 20220726
  4. INFLECTRA [Suspect]
     Active Substance: INFLIXIMAB-DYYB
     Dosage: 1 DF, UNKNOWN DOSE AT Q 0 ,2, 6 THEN EVERY 8 WEEKS
     Route: 042
     Dates: start: 20220920
  5. INFLECTRA [Suspect]
     Active Substance: INFLIXIMAB-DYYB
     Dosage: UNK
     Route: 042
     Dates: start: 20220929
  6. INFLECTRA [Suspect]
     Active Substance: INFLIXIMAB-DYYB
     Dosage: 5 MG/KG, EVERY 4 WEEK, 400MG
     Route: 042
     Dates: start: 20221116
  7. INFLECTRA [Suspect]
     Active Substance: INFLIXIMAB-DYYB
     Dosage: 5 MG/KG, EVERY 4 WEEK, 400MG
     Route: 042
     Dates: start: 20221221

REACTIONS (7)
  - Abscess [Unknown]
  - Off label use [Unknown]
  - Off label use [Unknown]
  - Intentional product use issue [Unknown]
  - Inappropriate schedule of product administration [Unknown]
  - Condition aggravated [Not Recovered/Not Resolved]
  - Rash follicular [Not Recovered/Not Resolved]

NARRATIVE: CASE EVENT DATE: 20220101
